FAERS Safety Report 18237496 (Version 1)
Quarter: 2020Q3

REPORT INFORMATION
  Report Type: Spontaneous
  Country: FR (occurrence: FR)
  Receive Date: 20200907
  Receipt Date: 20200907
  Transmission Date: 20201103
  Serious: Yes (Hospitalization)
  Sender: FDA-Public Use
  Company Number: FR-TEVA-2020-FR-1823358

PATIENT
  Age: 67 Year
  Sex: Female

DRUGS (4)
  1. ACIDE CLAVULANIQUE [Suspect]
     Active Substance: CLAVULANIC ACID
     Indication: ANTIBIOTIC PROPHYLAXIS
     Dosage: 200 MG
     Route: 042
     Dates: start: 20200722, end: 20200728
  2. PARACETAMOL [Suspect]
     Active Substance: ACETAMINOPHEN
     Indication: COLECTOMY
     Dosage: 1 GRAM
     Route: 042
     Dates: start: 20200723, end: 20200724
  3. AMOXICILLINE [Suspect]
     Active Substance: AMOXICILLIN
     Indication: ANTIBIOTIC PROPHYLAXIS
     Dosage: 1GRAM
     Route: 042
     Dates: start: 20200722, end: 20200728
  4. KETOPROFEN. [Suspect]
     Active Substance: KETOPROFEN
     Indication: COLECTOMY
     Dosage: 100 MG
     Route: 048
     Dates: start: 20200722, end: 20200723

REACTIONS (1)
  - Acute generalised exanthematous pustulosis [Recovering/Resolving]

NARRATIVE: CASE EVENT DATE: 20200724
